FAERS Safety Report 9088427 (Version 1)
Quarter: 2013Q1

REPORT INFORMATION
  Report Type: Spontaneous
  Country: JP (occurrence: JP)
  Receive Date: 20130201
  Receipt Date: 20130201
  Transmission Date: 20140127
  Serious: Yes (Life-Threatening, Other)
  Sender: FDA-Public Use
  Company Number: JP-PFIZER INC-2011298354

PATIENT
  Age: 23 Year
  Sex: Female

DRUGS (3)
  1. CISPLATIN [Suspect]
     Indication: OVARIAN GERM CELL ENDODERMAL SINUS TUMOUR STAGE III
     Dosage: 20 MG/M2, CYCLIC (DAYS 1-5)
  2. ETOPOSIDE [Suspect]
     Indication: OVARIAN GERM CELL ENDODERMAL SINUS TUMOUR STAGE III
     Dosage: 100 MG/M2, CYCLIC (DAYS 1-5)
  3. BLEOMYCIN [Suspect]
     Indication: OVARIAN GERM CELL ENDODERMAL SINUS TUMOUR STAGE III
     Dosage: 30 MG, CYCLIC (DAYS 2, 9, 16)

REACTIONS (6)
  - Pulmonary fibrosis [Not Recovered/Not Resolved]
  - Left ventricular dysfunction [Unknown]
  - Tumour lysis syndrome [Unknown]
  - Hydronephrosis [Recovering/Resolving]
  - Renal failure acute [Unknown]
  - Febrile neutropenia [Unknown]
